FAERS Safety Report 4733628-X (Version None)
Quarter: 2005Q3

REPORT INFORMATION
  Report Type: 
  Country: None (occurrence: None)
  Receive Date: 20050721
  Receipt Date: 20050517
  Transmission Date: 20060218
  Serious: No
  Sender: FDA-Public Use
  Company Number: 2005SP000836

PATIENT
  Age: 34 Year
  Sex: Male
  Weight: 90.7194 kg

DRUGS (6)
  1. LUNESTA [Suspect]
     Indication: INSOMNIA
     Dosage: 3 MG;HS;ORAL
     Route: 048
     Dates: start: 20050515
  2. KLONOPIN [Concomitant]
  3. ZANAFLEX [Concomitant]
  4. WELLBUTRIN SR [Concomitant]
  5. PAXIL [Concomitant]
  6. XANAX [Concomitant]

REACTIONS (3)
  - BALANCE DISORDER [None]
  - DYSGEUSIA [None]
  - INITIAL INSOMNIA [None]
